FAERS Safety Report 22850124 (Version 6)
Quarter: 2025Q1

REPORT INFORMATION
  Report Type: Spontaneous
  Country: US (occurrence: US)
  Receive Date: 20230822
  Receipt Date: 20250310
  Transmission Date: 20250409
  Serious: Yes (Other)
  Sender: PFIZER
  Company Number: US-PFIZER INC-202300277925

PATIENT
  Age: 64 Year
  Sex: Female
  Weight: 119.75 kg

DRUGS (13)
  1. IBRANCE [Suspect]
     Active Substance: PALBOCICLIB
     Indication: Breast cancer female
     Dosage: 125 MG, 1X/DAY (ONCE IN THE MORNING, 8 O^ CLOCK)
     Route: 048
  2. IBRANCE [Suspect]
     Active Substance: PALBOCICLIB
     Dosage: 125 MG, 1X/DAY (TAKE 1 TABLET PO QD X 21 DAYS, EVERY 28 DAYS)
     Route: 048
  3. IBRANCE [Suspect]
     Active Substance: PALBOCICLIB
     Route: 048
  4. SYNTHROID [Concomitant]
     Active Substance: LEVOTHYROXINE SODIUM
     Indication: Hypothyroidism
  5. LIPITOR [Concomitant]
     Active Substance: ATORVASTATIN CALCIUM
     Indication: Blood cholesterol abnormal
     Dosage: 20 MG, 1X/DAY
  6. METOPROLOL [Concomitant]
     Active Substance: METOPROLOL
     Indication: Cardiac murmur
     Dosage: 100 MG, 1X/DAY
  7. AMITRIPTYLINE [Concomitant]
     Active Substance: AMITRIPTYLINE
     Indication: Mental disorder
     Dosage: 20 MG, 2X/DAY (AT NIGHT)
  8. METFORMIN [Concomitant]
     Active Substance: METFORMIN HYDROCHLORIDE
     Indication: Diabetes mellitus
     Dosage: 500 MG, 2X/DAY
  9. CALTRATE WITH VITAMIN D [Concomitant]
     Active Substance: CALCIUM CARBONATE\CHOLECALCIFEROL
  10. VITAMIN D NOS [Concomitant]
     Active Substance: CHOLECALCIFEROL\ERGOCALCIFEROL
  11. LOSARTAN [Concomitant]
     Active Substance: LOSARTAN
  12. ZIPRASIDONE [ZIPRASIDONE HYDROCHLORIDE] [Concomitant]
     Indication: Mental disorder
  13. ASPIRIN [Concomitant]
     Active Substance: ASPIRIN

REACTIONS (6)
  - Breast cancer metastatic [Unknown]
  - Malignant neoplasm progression [Unknown]
  - Metastases to spine [Unknown]
  - Metastases to bone [Unknown]
  - Metastases to chest wall [Unknown]
  - Liver disorder [Unknown]
